FAERS Safety Report 9686809 (Version 1)
Quarter: 2013Q4

REPORT INFORMATION
  Report Type: Spontaneous
  Country: US (occurrence: US)
  Receive Date: 20131113
  Receipt Date: 20131113
  Transmission Date: 20140711
  Serious: Yes (Other)
  Sender: FDA-Public Use
  Company Number: CHPA2013US017106

PATIENT
  Age: 11 Year
  Sex: Female

DRUGS (3)
  1. TRIAMINIC NIGHT TIME COLD + COUGH [Suspect]
     Indication: COUGH
     Dosage: 2 TSP, ONCE/SINGLE
     Route: 048
     Dates: start: 20131107, end: 20131107
  2. TRIAMINIC NIGHT TIME COLD + COUGH [Suspect]
     Indication: SLEEP DISORDER
  3. TRIAMINIC NIGHT TIME COLD + COUGH [Suspect]
     Indication: OFF LABEL USE

REACTIONS (8)
  - Tunnel vision [Recovered/Resolved]
  - Incoherent [Recovered/Resolved]
  - Hyperhidrosis [Recovered/Resolved]
  - Fear [Recovered/Resolved]
  - Anxiety [Recovered/Resolved]
  - Insomnia [Recovered/Resolved]
  - Nervousness [Recovered/Resolved]
  - Dizziness [Recovered/Resolved]
